FAERS Safety Report 5890162-1 (Version None)
Quarter: 2008Q3

REPORT INFORMATION
  Report Type: 
  Country: None (occurrence: None)
  Receive Date: 20080919
  Receipt Date: 20080911
  Transmission Date: 20090109
  Serious: Yes (Other)
  Sender: FDA-Public Use
  Company Number: CH-PFIZER INC-2008071663

PATIENT
  Sex: Female
  Weight: 80 kg

DRUGS (4)
  1. XANAX [Suspect]
     Indication: RESTLESSNESS
     Route: 048
     Dates: start: 20080701
  2. XANAX [Suspect]
     Indication: ANGER
  3. REMERON [Suspect]
     Indication: INSOMNIA
     Route: 048
     Dates: start: 20080731
  4. REMERON [Suspect]
     Indication: DEPRESSION

REACTIONS (1)
  - DEMENTIA [None]
